FAERS Safety Report 6820277 (Version 2)
Quarter: 2012Q4

REPORT INFORMATION
  Report Type: Report from Study
  Country: FR (occurrence: FR)
  Receive Date: 20081124
  Receipt Date: 20121025
  Transmission Date: 20130627
  Serious: Yes (Hospitalization)
  Sender: FDA-Public Use
  Company Number: FR-PFIZER INC-2008096856

PATIENT
  Age: 75 Year
  Sex: Male

DRUGS (1)
  1. SUNITINIB MALATE [Suspect]
     Indication: PROSTATE CANCER
     Dosage: 37.5 mg, 1x/day
     Route: 048
     Dates: start: 20080710, end: 20081007

REACTIONS (4)
  - General physical health deterioration [Recovering/Resolving]
  - Inflammation [Recovering/Resolving]
  - Confusional state [Recovering/Resolving]
  - Dehydration [Recovering/Resolving]
